FAERS Safety Report 12482301 (Version 2)
Quarter: 2016Q2

REPORT INFORMATION
  Report Type: Spontaneous
  Country: US (occurrence: US)
  Receive Date: 20160620
  Receipt Date: 20160629
  Transmission Date: 20160815
  Serious: Yes (Other)
  Sender: FDA-Public Use
  Company Number: US-FRI-1000085402

PATIENT
  Age: 30 Year
  Sex: Female
  Weight: 59.09 kg

DRUGS (4)
  1. LAMICTAL [Concomitant]
     Active Substance: LAMOTRIGINE
     Indication: DEPRESSION
     Dosage: 50 MG
     Route: 048
  2. ETHANOL [Interacting]
     Active Substance: ALCOHOL
     Indication: SUBSTANCE USE
     Route: 048
     Dates: start: 20160531, end: 20160531
  3. VIIBRYD [Suspect]
     Active Substance: VILAZODONE HYDROCHLORIDE
     Indication: DEPRESSION
     Dosage: 10 MG
     Route: 048
     Dates: start: 2016, end: 2016
  4. VIIBRYD [Interacting]
     Active Substance: VILAZODONE HYDROCHLORIDE
     Dosage: 20 MG
     Route: 048
     Dates: start: 2016

REACTIONS (3)
  - Intentional product misuse [Recovered/Resolved]
  - Loss of consciousness [Recovered/Resolved]
  - Drug interaction [Recovered/Resolved]

NARRATIVE: CASE EVENT DATE: 20160531
